FAERS Safety Report 11061136 (Version 1)
Quarter: 2015Q2

REPORT INFORMATION
  Report Type: Spontaneous
  Country: US (occurrence: US)
  Receive Date: 20150424
  Receipt Date: 20150424
  Transmission Date: 20150821
  Serious: Yes (Other)
  Sender: FDA-Public Use
  Company Number: US-AMGEN-USASP2015038640

PATIENT
  Age: 69 Year
  Sex: Female

DRUGS (1)
  1. ENBREL [Suspect]
     Active Substance: ETANERCEPT
     Indication: RHEUMATOID ARTHRITIS
     Dosage: UNK UNK, UNK
     Route: 065
     Dates: start: 20100228

REACTIONS (14)
  - Influenza [Recovered/Resolved]
  - Retinal injury [Recovered/Resolved]
  - Multiple injuries [Recovered/Resolved]
  - Herpes zoster [Recovered/Resolved]
  - Cataract [Recovered/Resolved]
  - Injection site discomfort [Not Recovered/Not Resolved]
  - Road traffic accident [Recovered/Resolved]
  - Joint range of motion decreased [Recovered/Resolved]
  - Musculoskeletal discomfort [Recovered/Resolved]
  - Blindness [Recovered/Resolved]
  - Limb injury [Recovered/Resolved]
  - Musculoskeletal pain [Recovered/Resolved]
  - Feeling abnormal [Recovered/Resolved]
  - Vertigo [Recovered/Resolved]

NARRATIVE: CASE EVENT DATE: 20111109
